FAERS Safety Report 19909992 (Version 1)
Quarter: 2021Q4

REPORT INFORMATION
  Report Type: Spontaneous
  Country: JP (occurrence: JP)
  Receive Date: 20211003
  Receipt Date: 20211003
  Transmission Date: 20220303
  Serious: Yes (Other)
  Sender: FDA-Public Use
  Company Number: JP-NOVARTISPH-NVSJ2021JP014496

PATIENT
  Age: 53 Year
  Sex: Female

DRUGS (1)
  1. DICLOFENAC SODIUM [Suspect]
     Active Substance: DICLOFENAC SODIUM
     Indication: Product used for unknown indication
     Dosage: UNK
     Route: 054

REACTIONS (5)
  - Spondylolisthesis [Unknown]
  - Physical deconditioning [Unknown]
  - Body temperature decreased [Unknown]
  - Blood pressure increased [Unknown]
  - Vascular pain [Unknown]
